FAERS Safety Report 9383969 (Version 3)
Quarter: 2013Q3

REPORT INFORMATION
  Report Type: Spontaneous
  Country: US (occurrence: US)
  Receive Date: 20130705
  Receipt Date: 20130726
  Transmission Date: 20140515
  Serious: Yes (Death, Other)
  Sender: FDA-Public Use
  Company Number: US-AMGEN-USASP2013046073

PATIENT
  Age: 94 Year
  Sex: Female

DRUGS (6)
  1. PROLIA [Suspect]
     Indication: OSTEOPOROSIS POSTMENOPAUSAL
  2. TOPROL [Concomitant]
  3. SIMVASTATIN [Concomitant]
     Dosage: 40 MG, QD
  4. ASPIRIN [Concomitant]
     Dosage: 81 MG, QD
  5. CALCIUM [Concomitant]
     Dosage: 1 UNK, UNK
  6. FISH OIL [Concomitant]

REACTIONS (4)
  - Death [Fatal]
  - Humerus fracture [Unknown]
  - Fall [Unknown]
  - Pain [Unknown]
